FAERS Safety Report 24066415 (Version 1)
Quarter: 2024Q3

REPORT INFORMATION
  Report Type: Spontaneous
  Country: GB (occurrence: GB)
  Receive Date: 20240709
  Receipt Date: 20240709
  Transmission Date: 20241017
  Serious: Yes (Life-Threatening, Other)
  Sender: PFIZER
  Company Number: GB-PFIZER INC-PV202400087986

PATIENT
  Age: 3 Year
  Sex: Male

DRUGS (2)
  1. ETOPOSIDE [Suspect]
     Active Substance: ETOPOSIDE
     Indication: Embryonal rhabdomyosarcoma
     Dosage: 150 MG/M2, EVERY 4 HRS (AS A 4 H INFUSION, ON EACH OF 3 DAYS OF TREATMENT))
  2. CARBOPLATIN [Suspect]
     Active Substance: CARBOPLATIN
     Indication: Embryonal rhabdomyosarcoma
     Dosage: UNK

REACTIONS (4)
  - Drug ineffective for unapproved indication [Recovering/Resolving]
  - Off label use [Recovering/Resolving]
  - Biliary obstruction [Recovering/Resolving]
  - Condition aggravated [Recovering/Resolving]
